FAERS Safety Report 5097931-9 (Version None)
Quarter: 2006Q3

REPORT INFORMATION
  Report Type: 
  Country: None (occurrence: None)
  Receive Date: 20060905
  Receipt Date: 20060905
  Transmission Date: 20061208
  Serious: Yes (Life-Threatening, Hospitalization)
  Sender: FDA-Public Use
  Company Number: None

PATIENT
  Age: 31 Year
  Sex: Female
  Weight: 72.5755 kg

DRUGS (1)
  1. PENTASA [Suspect]
     Indication: CROHN'S DISEASE
     Dosage: 4 TIMES PER DAY PO
     Route: 048
     Dates: start: 20060602, end: 20060607

REACTIONS (9)
  - ANGIOPATHY [None]
  - DRUG HYPERSENSITIVITY [None]
  - HEADACHE [None]
  - HYPERAESTHESIA [None]
  - PAIN [None]
  - PALPITATIONS [None]
  - PULMONARY OEDEMA [None]
  - PYREXIA [None]
  - THROAT TIGHTNESS [None]
